FAERS Safety Report 10273184 (Version 1)
Quarter: 2014Q2

REPORT INFORMATION
  Report Type: Spontaneous
  Country: US (occurrence: None)
  Receive Date: 20140630
  Receipt Date: 20140630
  Transmission Date: 20141212
  Serious: Yes (Hospitalization)
  Sender: FDA-Public Use
  Company Number: UNT-2014-002563

PATIENT
  Age: 64 Year
  Sex: Female
  Weight: 68 kg

DRUGS (2)
  1. REMODULIN [Suspect]
     Indication: PULMONARY ARTERIAL HYPERTENSION
     Dosage: 0.021 UG/KG, CONTINUING
     Route: 058
     Dates: start: 20130912
  2. LETAIRIS (AMBRISENTAN) [Concomitant]

REACTIONS (2)
  - Fracture [None]
  - Back pain [None]
